FAERS Safety Report 24310347 (Version 1)
Quarter: 2024Q3

REPORT INFORMATION
  Report Type: Spontaneous
  Country: US (occurrence: US)
  Receive Date: 20240912
  Receipt Date: 20240912
  Transmission Date: 20241016
  Serious: Yes (Other)
  Sender: TEVA
  Company Number: US-TEVA-VS-3240015

PATIENT
  Age: 26 Year
  Sex: Female
  Weight: 78.2 kg

DRUGS (4)
  1. UZEDY [Suspect]
     Active Substance: RISPERIDONE
     Indication: Schizophrenia
     Dosage: STRENGTH: 100/0.28 MG/ML
     Route: 065
     Dates: start: 20240725, end: 202408
  2. UZEDY [Suspect]
     Active Substance: RISPERIDONE
     Dosage: STRENGTH: 125/0.35 MG/ML??
     Route: 065
     Dates: start: 20240826, end: 2024
  3. SEROQUEL [Concomitant]
     Active Substance: QUETIAPINE FUMARATE
     Indication: Product used for unknown indication
     Dosage: 1-2 TABLETS
     Route: 065
  4. DEPAKOTE [Concomitant]
     Active Substance: DIVALPROEX SODIUM
     Indication: Product used for unknown indication
     Dosage: 2 TABLETS AT BEDTIME
     Route: 065

REACTIONS (3)
  - Alanine aminotransferase increased [Unknown]
  - Adverse event [Unknown]
  - Aspartate aminotransferase increased [Unknown]

NARRATIVE: CASE EVENT DATE: 20240101
